FAERS Safety Report 10414815 (Version 2)
Quarter: 2014Q4

REPORT INFORMATION
  Report Type: Spontaneous
  Country: US (occurrence: None)
  Receive Date: 20140604
  Receipt Date: 20141010
  Transmission Date: 20150528
  Serious: No
  Sender: FDA-Public Use
  Company Number: 163-POMAL-14034176

PATIENT
  Age: 66 Year
  Sex: Female
  Weight: 57.2 kg

DRUGS (3)
  1. KLOR-CON (POTASSIUM CHLORIDE) [Concomitant]
  2. CALCIUM [Concomitant]
     Active Substance: CALCIUM
  3. POMALYST [Suspect]
     Active Substance: POMALIDOMIDE
     Indication: PLASMA CELL MYELOMA
     Dosage: 21 IN 28 D
     Route: 048
     Dates: start: 201305

REACTIONS (8)
  - Pain [None]
  - Myalgia [None]
  - Paranasal sinus discomfort [None]
  - Sinus headache [None]
  - Full blood count decreased [None]
  - Nasopharyngitis [None]
  - Drug intolerance [None]
  - Chills [None]

NARRATIVE: CASE EVENT DATE: 201403
